FAERS Safety Report 24532218 (Version 2)
Quarter: 2024Q4

REPORT INFORMATION
  Report Type: Report from Study
  Country: IN (occurrence: IN)
  Receive Date: 20241022
  Receipt Date: 20241030
  Transmission Date: 20250115
  Serious: Yes (Death, Hospitalization, Other)
  Sender: CIPLA
  Company Number: IN-CIPLA LTD.-2024IN11611

PATIENT

DRUGS (7)
  1. TORSEMIDE [Suspect]
     Active Substance: TORSEMIDE
     Indication: Diuretic therapy
     Dosage: UNK (1 DOSE AND 1 FREQUENCY (UNITS UNSPECIFIED))
     Route: 048
  2. METOPROLOL TARTRATE [Suspect]
     Active Substance: METOPROLOL TARTRATE
     Indication: Hypertension
     Dosage: UNK (1 DOSE AND 1 FREQUENCY (UNITS UNSPECIFIED))
     Route: 048
  3. ASPIRIN\ATORVASTATIN [Concomitant]
     Active Substance: ASPIRIN\ATORVASTATIN
     Indication: Product used for unknown indication
     Dosage: UNK, QD (STRENGTH: 75/20MG)
     Route: 065
     Dates: start: 2022
  4. NITROCONTIN [Concomitant]
     Indication: Product used for unknown indication
     Dosage: 2.6 MILLIGRAM, BID
     Route: 065
     Dates: start: 2022
  5. SACUBITRIL\VALSARTAN [Concomitant]
     Active Substance: SACUBITRIL\VALSARTAN
     Indication: Product used for unknown indication
     Dosage: 1 DOSAGE FORM, QD
     Route: 065
     Dates: start: 2022
  6. DAPA [INDAPAMIDE] [Concomitant]
     Indication: Product used for unknown indication
     Dosage: 10 MILLIGRAM, QD
     Route: 065
     Dates: start: 2022
  7. URIMAX [TAMSULOSIN HYDROCHLORIDE] [Concomitant]
     Indication: Product used for unknown indication
     Dosage: 0.4 MILLIGRAM, QD
     Route: 065
     Dates: start: 2022

REACTIONS (3)
  - Coronary artery disease [Fatal]
  - Paralysis [Fatal]
  - Coma [Unknown]

NARRATIVE: CASE EVENT DATE: 20240426
